FAERS Safety Report 11390168 (Version 3)
Quarter: 2015Q4

REPORT INFORMATION
  Report Type: Spontaneous
  Country: US (occurrence: US)
  Receive Date: 20150818
  Receipt Date: 20151117
  Transmission Date: 20160304
  Serious: No
  Sender: FDA-Public Use
  Company Number: US-LUPIN PHARMACEUTICALS INC.-E2B_00003980

PATIENT
  Age: 62 Year
  Sex: Female
  Weight: 68.1 kg

DRUGS (4)
  1. NASACORT [Concomitant]
     Active Substance: TRIAMCINOLONE ACETONIDE
     Indication: SINUS DISORDER
     Route: 065
  2. SUPRAX [Suspect]
     Active Substance: CEFIXIME
     Route: 065
  3. NASONEX [Concomitant]
     Active Substance: MOMETASONE FUROATE
     Indication: SINUS DISORDER
     Route: 065
  4. SUPRAX [Suspect]
     Active Substance: CEFIXIME
     Indication: SINUS DISORDER
     Route: 048
     Dates: start: 20150717, end: 20150725

REACTIONS (3)
  - Insomnia [Unknown]
  - Abdominal discomfort [Unknown]
  - Dyspnoea [Recovering/Resolving]

NARRATIVE: CASE EVENT DATE: 20150726
